FAERS Safety Report 16837595 (Version 1)
Quarter: 2019Q3

REPORT INFORMATION
  Report Type: Spontaneous
  Country: IN (occurrence: IN)
  Receive Date: 20190923
  Receipt Date: 20190923
  Transmission Date: 20191005
  Serious: Yes (Disabling, Other)
  Sender: FDA-Public Use
  Company Number: IN-LUPIN PHARMACEUTICALS INC.-2019-06023

PATIENT
  Age: 14 Year
  Sex: Female

DRUGS (9)
  1. CARBAMAZEPINE. [Interacting]
     Active Substance: CARBAMAZEPINE
     Dosage: UNK (DOSE REDUCED)
     Route: 065
  2. SODIUM VALPROATE [Interacting]
     Active Substance: VALPROATE SODIUM
     Indication: EPILEPSY
     Dosage: 36 MILLIGRAM/KILOGRAM (GRADUALLY UP-TITRATED TO 2 GM)
     Route: 065
  3. QUETIAPINE. [Suspect]
     Active Substance: QUETIAPINE
     Indication: MANIA
     Dosage: 400 MILLIGRAM
     Route: 065
  4. ARIPIPRAZOLE. [Suspect]
     Active Substance: ARIPIPRAZOLE
     Indication: MANIA
     Dosage: 10 MILLIGRAM
     Route: 065
  5. CARBAMAZEPINE. [Interacting]
     Active Substance: CARBAMAZEPINE
     Indication: EPILEPSY
     Dosage: 600 MILLIGRAM, QD (10 MG/KG/DAY)
     Route: 065
  6. SODIUM VALPROATE [Interacting]
     Active Substance: VALPROATE SODIUM
     Dosage: 1400 MILLIGRAM (25 MG/KG)
     Route: 065
  7. CLOBAZAM. [Suspect]
     Active Substance: CLOBAZAM
     Indication: SEIZURE
     Dosage: 10 MILLIGRAM
     Route: 065
  8. RISPERIDONE. [Suspect]
     Active Substance: RISPERIDONE
     Indication: MANIA
     Dosage: 8 MILLIGRAM (GRADUALLY TITRATED)
     Route: 065
  9. SODIUM VALPROATE [Interacting]
     Active Substance: VALPROATE SODIUM
     Dosage: 20 MILLIGRAM/KILOGRAM (1 GRAM)
     Route: 065

REACTIONS (10)
  - Paradoxical drug reaction [Unknown]
  - Drug interaction [Unknown]
  - Drug level decreased [Unknown]
  - Parkinsonism [Not Recovered/Not Resolved]
  - Drug ineffective [Unknown]
  - Toxicity to various agents [Unknown]
  - Akathisia [Unknown]
  - Hyperammonaemia [Recovered/Resolved]
  - Hepatic enzyme increased [Recovered/Resolved]
  - Disinhibition [Unknown]
